FAERS Safety Report 12056865 (Version 2)
Quarter: 2016Q1

REPORT INFORMATION
  Report Type: Other
  Country: FR (occurrence: FR)
  Receive Date: 20160209
  Receipt Date: 20160211
  Transmission Date: 20160526
  Serious: Yes (Hospitalization, Other)
  Sender: FDA-Public Use
  Company Number: FR-TAKEDA-2016MPI000763

PATIENT
  Age: 61 Year
  Sex: Female

DRUGS (13)
  1. VELCADE [Suspect]
     Active Substance: BORTEZOMIB
     Indication: AMYLOIDOSIS
     Dosage: UNK
     Route: 058
     Dates: start: 20151204
  2. DEXAMETHASONE. [Suspect]
     Active Substance: DEXAMETHASONE
     Dosage: 40 MG, UNK
     Route: 048
     Dates: start: 20150904, end: 20151006
  3. ENDOXAN                            /00021101/ [Suspect]
     Active Substance: CYCLOPHOSPHAMIDE
     Dosage: UNK
     Route: 048
     Dates: start: 20151204
  4. LEVOTHYROX [Concomitant]
     Active Substance: LEVOTHYROXINE
     Dosage: UNK
     Route: 065
  5. INEXIUM                            /01479302/ [Concomitant]
     Active Substance: ESOMEPRAZOLE MAGNESIUM
     Dosage: UNK
     Route: 065
  6. ARTANE [Concomitant]
     Active Substance: TRIHEXYPHENIDYL HYDROCHLORIDE
     Dosage: UNK
     Route: 065
  7. BACTRIM [Concomitant]
     Active Substance: SULFAMETHOXAZOLE\TRIMETHOPRIM
     Dosage: UNK
     Route: 065
  8. KARDEGIC [Suspect]
     Active Substance: ASPIRIN LYSINE
     Dosage: UNK
     Route: 065
     Dates: end: 20151008
  9. IMOVANE [Concomitant]
     Active Substance: ZOPICLONE
     Dosage: UNK
     Route: 065
  10. DEXAMETHASONE. [Suspect]
     Active Substance: DEXAMETHASONE
     Indication: AMYLOIDOSIS
     Dosage: UNK
     Route: 048
     Dates: start: 20151204
  11. KARDEGIC [Suspect]
     Active Substance: ASPIRIN LYSINE
     Indication: PRODUCT USED FOR UNKNOWN INDICATION
     Dosage: UNK
     Route: 065
  12. VELCADE [Suspect]
     Active Substance: BORTEZOMIB
     Dosage: 1.85 MG, UNK
     Route: 058
     Dates: start: 20150904, end: 20151005
  13. ENDOXAN                            /00021101/ [Suspect]
     Active Substance: CYCLOPHOSPHAMIDE
     Indication: AMYLOIDOSIS
     Dosage: 500 MG, UNK
     Route: 048
     Dates: start: 20150904, end: 20151009

REACTIONS (5)
  - Transient ischaemic attack [Recovered/Resolved]
  - Off label use [Unknown]
  - Product use issue [Unknown]
  - Ischaemic stroke [Recovered/Resolved with Sequelae]
  - Mallory-Weiss syndrome [Unknown]

NARRATIVE: CASE EVENT DATE: 20151007
